FAERS Safety Report 6901868-7 (Version None)
Quarter: 2010Q3

REPORT INFORMATION
  Report Type: 
  Country: None (occurrence: None)
  Receive Date: 20100803
  Receipt Date: 20080326
  Transmission Date: 20110219
  Serious: Yes (Other)
  Sender: FDA-Public Use
  Company Number: US-PFIZER INC-2008027102

PATIENT
  Sex: Female
  Weight: 101.6 kg

DRUGS (9)
  1. LYRICA [Suspect]
     Indication: NERVE INJURY
     Dosage: EVERYDAY
     Route: 048
     Dates: start: 20080201
  2. LYRICA [Suspect]
     Indication: NEURALGIA
  3. DEPAKOTE [Concomitant]
     Dates: start: 19960101
  4. SYNTHROID [Concomitant]
     Dates: start: 19800101
  5. CYTOMEL [Concomitant]
  6. EFFEXOR XR [Concomitant]
     Dates: start: 20040101
  7. NEFAZODONE HCL [Concomitant]
     Dates: start: 19960101
  8. SERC [Concomitant]
     Dates: start: 20050101
  9. ALL OTHER THERAPEUTIC PRODUCTS [Concomitant]

REACTIONS (3)
  - BALANCE DISORDER [None]
  - DIZZINESS [None]
  - WEIGHT INCREASED [None]
